FAERS Safety Report 18821850 (Version 2)
Quarter: 2021Q1

REPORT INFORMATION
  Report Type: Spontaneous
  Country: US (occurrence: US)
  Receive Date: 20210202
  Receipt Date: 20210210
  Transmission Date: 20210419
  Serious: No
  Sender: FDA-Public Use
  Company Number: US-009507513-2101USA012027

PATIENT
  Age: 29 Year
  Sex: Female

DRUGS (2)
  1. NUVARING [Suspect]
     Active Substance: ETHINYL ESTRADIOL\ETONOGESTREL
     Indication: CONTRACEPTION
     Dosage: 1 DOSAGE FORM, 21 DAYS, 2 CYCLES
     Route: 067
     Dates: end: 202101
  2. NUVARING [Suspect]
     Active Substance: ETHINYL ESTRADIOL\ETONOGESTREL
     Dosage: 1 DOSAGE FORM
     Route: 067
     Dates: start: 202101

REACTIONS (2)
  - Dizziness [Recovered/Resolved]
  - Migraine [Recovered/Resolved]

NARRATIVE: CASE EVENT DATE: 20210110
